FAERS Safety Report 5836197-6 (Version None)
Quarter: 2008Q3

REPORT INFORMATION
  Report Type: 
  Country: None (occurrence: None)
  Receive Date: 20080805
  Receipt Date: 20080722
  Transmission Date: 20090109
  Serious: Yes (Other)
  Sender: FDA-Public Use
  Company Number: 440018M08USA

PATIENT
  Age: 46 Year
  Sex: Male
  Weight: 61.6892 kg

DRUGS (3)
  1. SEROSTIM [Suspect]
     Indication: CACHEXIA
     Dosage: NOT REPORTED
     Dates: start: 20070701, end: 20080701
  2. UNSPECIFIED HIV MEDICATIONS (ALL OTHER THERAPEUTIC PRODUCTS) [Suspect]
     Dosage: NOT REPORTED
  3. UNSPECIFIED HIV MEDICATIONS (ALL OTHER THERAPEUTIC PRODUCTS) [Concomitant]

REACTIONS (2)
  - FATIGUE [None]
  - RENAL FAILURE ACUTE [None]
